FAERS Safety Report 23235230 (Version 10)
Quarter: 2024Q3

REPORT INFORMATION
  Report Type: Spontaneous
  Country: CA (occurrence: CA)
  Receive Date: 20231128
  Receipt Date: 20240717
  Transmission Date: 20241017
  Serious: Yes (Other)
  Sender: PFIZER
  Company Number: CA-PFIZER INC-202300385663

PATIENT
  Age: 70 Year
  Sex: Male

DRUGS (4)
  1. ABRILADA [Suspect]
     Active Substance: ADALIMUMAB-AFZB
     Indication: Ankylosing spondylitis
     Dosage: 40 MG, EVERY 2 WEEKS
     Route: 058
     Dates: start: 20230810
  2. ABRILADA [Suspect]
     Active Substance: ADALIMUMAB-AFZB
     Dosage: 40 MG, EVERY 2 WEEKS (HE TOOK 1 DOSE)
     Route: 058
     Dates: start: 20240613
  3. LYRICA [Concomitant]
     Active Substance: PREGABALIN
     Dosage: 1 DF
  4. TYLENOL [Concomitant]
     Active Substance: ACETAMINOPHEN
     Dosage: 1 DF

REACTIONS (5)
  - Tooth disorder [Not Recovered/Not Resolved]
  - Knee arthroplasty [Unknown]
  - Blood iron decreased [Not Recovered/Not Resolved]
  - Walking aid user [Unknown]
  - Therapeutic product effect incomplete [Unknown]

NARRATIVE: CASE EVENT DATE: 20230101
